FAERS Safety Report 5017947-8 (Version None)
Quarter: 2006Q2

REPORT INFORMATION
  Report Type: 
  Country: None (occurrence: None)
  Receive Date: 20060605
  Receipt Date: 20051223
  Transmission Date: 20061013
  Serious: Yes (Other)
  Sender: FDA-Public Use
  Company Number: NL-GLAXOSMITHKLINE-B0405159A

PATIENT
  Age: 55 Year
  Sex: Female
  Weight: 68 kg

DRUGS (3)
  1. PAROXETINE HYDROCHLORIDE [Suspect]
     Route: 065
     Dates: start: 20050901, end: 20051001
  2. IMIGRAN [Concomitant]
  3. CLONIDINE [Concomitant]

REACTIONS (2)
  - DYSKINESIA [None]
  - DYSPHONIA [None]
